FAERS Safety Report 9415800 (Version 1)
Quarter: 2013Q3

REPORT INFORMATION
  Report Type: Spontaneous
  Country: ES (occurrence: ES)
  Receive Date: 20130724
  Receipt Date: 20130724
  Transmission Date: 20140515
  Serious: Yes (Hospitalization)
  Sender: FDA-Public Use
  Company Number: ES-ROCHE-1251661

PATIENT
  Age: 42 Year
  Sex: Male

DRUGS (7)
  1. RITUXIMAB [Suspect]
     Indication: GRANULOMATOSIS WITH POLYANGIITIS
     Route: 065
  2. MYCOPHENOLATE MOFETIL [Suspect]
     Indication: GRANULOMATOSIS WITH POLYANGIITIS
     Dosage: PER 12 HOUR 2 MIN
     Route: 065
  3. CYCLOPHOSPHAMIDE [Suspect]
     Indication: GRANULOMATOSIS WITH POLYANGIITIS
     Dosage: 1.5 MG/KG/DAY
     Route: 042
     Dates: start: 2004
  4. CYCLOPHOSPHAMIDE [Suspect]
     Dosage: 10 MG/KG
     Route: 042
     Dates: start: 2007
  5. CYCLOPHOSPHAMIDE [Suspect]
     Route: 042
     Dates: start: 200801
  6. PREDNISONE [Suspect]
     Indication: GRANULOMATOSIS WITH POLYANGIITIS
     Dosage: 1MG/KG/DAY
     Route: 048
     Dates: start: 2004
  7. PREDNISONE [Suspect]
     Dosage: 1MG/KG/DAY
     Route: 048
     Dates: start: 2007

REACTIONS (1)
  - Rectal adenocarcinoma [Unknown]
